FAERS Safety Report 8483510-X (Version None)
Quarter: 2012Q3

REPORT INFORMATION
  Report Type: 
  Country: None (occurrence: None)
  Receive Date: 20120702
  Receipt Date: 20120625
  Transmission Date: 20120928
  Serious: Yes (Other)
  Sender: FDA-Public Use
  Company Number: FR-ABBOTT-12P-056-0939019-00

PATIENT
  Sex: Male

DRUGS (6)
  1. PENTOXIFYLLINE [Interacting]
     Indication: PULMONARY EMBOLISM
     Route: 048
     Dates: start: 20111201
  2. PENTOXIFYLLINE [Interacting]
     Dates: start: 20111207
  3. REYATAZ [Interacting]
     Indication: HIV INFECTION
     Route: 048
     Dates: start: 20080121
  4. TRUVADA [Concomitant]
     Indication: HIV INFECTION
  5. NORVIR [Suspect]
     Indication: HIV INFECTION
     Route: 048
     Dates: start: 20070924
  6. PENTOXIFYLLINE [Interacting]
     Dates: start: 20111219

REACTIONS (3)
  - PULMONARY EMBOLISM [None]
  - DRUG INTERACTION [None]
  - INTERNATIONAL NORMALISED RATIO DECREASED [None]
